FAERS Safety Report 25997692 (Version 1)
Quarter: 2025Q4

REPORT INFORMATION
  Report Type: Spontaneous
  Country: AU (occurrence: AU)
  Receive Date: 20251104
  Receipt Date: 20251104
  Transmission Date: 20260117
  Serious: Yes (Hospitalization)
  Sender: BIOGEN
  Company Number: AU-BIOGEN-2088693

PATIENT
  Age: 17 Year
  Sex: Female

DRUGS (1)
  1. TYSABRI [Suspect]
     Active Substance: NATALIZUMAB
     Indication: Marburg^s variant multiple sclerosis

REACTIONS (2)
  - Marburg^s variant multiple sclerosis [Not Recovered/Not Resolved]
  - Off label use [Not Recovered/Not Resolved]
